FAERS Safety Report 5149796-4 (Version None)
Quarter: 2006Q4

REPORT INFORMATION
  Report Type: 
  Country: None (occurrence: None)
  Receive Date: 20061108
  Receipt Date: 20061026
  Transmission Date: 20070319
  Serious: Yes (Hospitalization, Other)
  Sender: FDA-Public Use
  Company Number: 2006-01167

PATIENT
  Age: 70 Year
  Sex: Male
  Weight: 111.1 kg

DRUGS (10)
  1. VELCADE [Suspect]
     Indication: MULTIPLE MYELOMA
     Dosage: 1.30 MG/M2, UNK, IV BOLUS
     Route: 040
     Dates: start: 20060417
  2. VELCADE [Suspect]
     Indication: MULTIPLE MYELOMA
     Dosage: 1.30 MG/M2, UNK, IV BOLUS
     Route: 040
     Dates: start: 20060424
  3. WARFARIN SODIUM [Concomitant]
  4. SIMVASTATIN [Concomitant]
  5. GLUCOSAMINE (GLUCOSAMINE) [Concomitant]
  6. PRILOSEC [Concomitant]
  7. PRAVACHOL [Concomitant]
  8. NEXIUM [Concomitant]
  9. METHADONE HCL [Concomitant]
  10. ESCITALOPRAM OXALATE [Concomitant]

REACTIONS (21)
  - BACK PAIN [None]
  - BLOOD CALCIUM DECREASED [None]
  - BLOOD POTASSIUM DECREASED [None]
  - CEREBRAL ATROPHY [None]
  - COGNITIVE DISORDER [None]
  - DEMYELINATION [None]
  - DEPRESSION [None]
  - DIABETIC NEUROPATHY [None]
  - DYSARTHRIA [None]
  - DYSPHAGIA [None]
  - DYSPHEMIA [None]
  - DYSPNOEA [None]
  - FALL [None]
  - FATIGUE [None]
  - GAIT DISTURBANCE [None]
  - HYPOREFLEXIA [None]
  - NEUROPATHY [None]
  - NEUROPATHY PERIPHERAL [None]
  - PERONEAL NERVE PALSY [None]
  - SLEEP APNOEA SYNDROME [None]
  - SPINAL OSTEOARTHRITIS [None]
